FAERS Safety Report 8698012 (Version 2)
Quarter: 2013Q4

REPORT INFORMATION
  Report Type: Spontaneous
  Country: US (occurrence: US)
  Receive Date: 20120801
  Receipt Date: 20131107
  Transmission Date: 20140711
  Serious: Yes (Hospitalization, Disabling, Other)
  Sender: FDA-Public Use
  Company Number: US-009507513-1207USA009900

PATIENT
  Age: 71 Year
  Sex: Male

DRUGS (7)
  1. ZOCOR [Suspect]
     Dosage: 40 MG, UNK
     Route: 048
  2. CYPROTERONE ACETATE [Suspect]
     Dosage: 100 MG, TID
     Route: 048
  3. ATENOLOL [Concomitant]
  4. BENDROFLUMETHIAZIDE [Concomitant]
  5. PROSTAP [Concomitant]
  6. ASPIRIN [Concomitant]
  7. ALLOPURINOL [Concomitant]

REACTIONS (8)
  - Fatigue [Unknown]
  - Muscular weakness [Unknown]
  - Mobility decreased [Unknown]
  - Rhabdomyolysis [Unknown]
  - Dyspnoea [Unknown]
  - Prostate cancer [Unknown]
  - Drug interaction [Unknown]
  - Paraesthesia [Unknown]
